FAERS Safety Report 21895787 (Version 3)
Quarter: 2023Q1

REPORT INFORMATION
  Report Type: Spontaneous
  Country: JP (occurrence: JP)
  Receive Date: 20230123
  Receipt Date: 20230314
  Transmission Date: 20230417
  Serious: Yes (Hospitalization, Other)
  Sender: FDA-Public Use
  Company Number: JP-ABBVIE-4277608

PATIENT
  Age: 79 Year
  Sex: Female

DRUGS (1)
  1. RINVOQ [Suspect]
     Active Substance: UPADACITINIB
     Indication: Rheumatoid arthritis
     Dosage: FORM STRENGTH-15 MILLIGRAM
     Route: 048
     Dates: start: 20210513

REACTIONS (1)
  - Radius fracture [Recovering/Resolving]

NARRATIVE: CASE EVENT DATE: 20230116
